FAERS Safety Report 16305221 (Version 2)
Quarter: 2022Q4

REPORT INFORMATION
  Report Type: Spontaneous
  Country: AT (occurrence: AT)
  Receive Date: 20190513
  Receipt Date: 20221128
  Transmission Date: 20230113
  Serious: Yes (Hospitalization, Other)
  Sender: FDA-Public Use
  Company Number: AT-SA-2018SA309557

PATIENT
  Sex: Male

DRUGS (20)
  1. ESCITALOPRAM [Suspect]
     Active Substance: ESCITALOPRAM OXALATE
     Indication: Euphoric mood
     Dosage: 10 MILLIGRAM
     Route: 065
  2. ESCITALOPRAM [Suspect]
     Active Substance: ESCITALOPRAM OXALATE
     Dosage: 3 MILLIGRAM, QD
     Route: 065
  3. PREGABALIN [Suspect]
     Active Substance: PREGABALIN
     Indication: Product used for unknown indication
     Dosage: 25 MG, BID
     Route: 048
  4. PREGABALIN [Suspect]
     Active Substance: PREGABALIN
     Dosage: 50 MG
     Route: 048
  5. OXAZEPAM [Suspect]
     Active Substance: OXAZEPAM
     Indication: Product used for unknown indication
     Dosage: UNK
     Route: 065
  6. LORAZEPAM [Suspect]
     Active Substance: LORAZEPAM
     Indication: Product used for unknown indication
     Dosage: UNK
     Route: 065
  7. PIRACETAM [Suspect]
     Active Substance: PIRACETAM
     Indication: Product used for unknown indication
     Dosage: 1200 MG
     Route: 065
  8. CEREBROLYSIN [Suspect]
     Active Substance: CEREBROLYSIN
     Indication: Product used for unknown indication
     Dosage: UNK
     Route: 065
  9. MIRTAZAPINE [Suspect]
     Active Substance: MIRTAZAPINE
     Indication: Insomnia
     Dosage: 15 MILLIGRAM
     Route: 065
  10. RIVASTIGMINE [Suspect]
     Active Substance: RIVASTIGMINE
     Indication: Product used for unknown indication
     Dosage: 4.6 MG, QD
     Route: 062
  11. RIVASTIGMINE [Suspect]
     Active Substance: RIVASTIGMINE
     Dosage: UNK (DOSE INCREASED).
     Route: 062
  12. RISPERDAL [Suspect]
     Active Substance: RISPERIDONE
     Indication: Product used for unknown indication
     Dosage: UNK
     Route: 065
  13. RISPERIDONE [Suspect]
     Active Substance: RISPERIDONE
     Indication: Product used for unknown indication
     Dosage: 3 MG, QD
     Route: 065
  14. RISPERIDONE [Suspect]
     Active Substance: RISPERIDONE
     Dosage: 1 MG
     Route: 065
  15. RISPERIDONE [Suspect]
     Active Substance: RISPERIDONE
     Dosage: UNK
     Route: 065
  16. QUETIAPINE [Suspect]
     Active Substance: QUETIAPINE
     Indication: Product used for unknown indication
     Dosage: 100 MG
     Route: 048
  17. QUETIAPINE [Suspect]
     Active Substance: QUETIAPINE
     Dosage: 25 MG IN THE EVENINGUNK
     Route: 065
  18. QUETIAPINE [Suspect]
     Active Substance: QUETIAPINE
     Dosage: SLOWLY INCREASED UNK
     Route: 065
  19. VALPROIC ACID [Suspect]
     Active Substance: VALPROIC ACID
     Indication: Product used for unknown indication
     Dosage: 1000 MG, QD
     Route: 065
  20. NALTREXONE [Suspect]
     Active Substance: NALTREXONE
     Indication: Product used for unknown indication
     Dosage: UNK
     Route: 065

REACTIONS (22)
  - Muscle rigidity [Unknown]
  - Tremor [Unknown]
  - Urinary incontinence [Unknown]
  - Drug ineffective [Unknown]
  - Hallucination [Not Recovered/Not Resolved]
  - Dementia with Lewy bodies [Unknown]
  - Alcoholism [Unknown]
  - Hallucination, visual [Not Recovered/Not Resolved]
  - Korsakoff^s syndrome [Unknown]
  - Dementia [Unknown]
  - Behaviour disorder [Unknown]
  - Cognitive disorder [Unknown]
  - Aggression [Unknown]
  - Apraxia [Unknown]
  - Mania [Unknown]
  - Restlessness [Unknown]
  - Sleep disorder [Unknown]
  - Agitation [Unknown]
  - Parkinsonism [Unknown]
  - Depression [Unknown]
  - Insomnia [Unknown]
  - Dysphoria [Unknown]

NARRATIVE: CASE EVENT DATE: 20180101
